FAERS Safety Report 8502518-9 (Version None)
Quarter: 2012Q3

REPORT INFORMATION
  Report Type: 
  Country: None (occurrence: None)
  Receive Date: 20120711
  Receipt Date: 20120702
  Transmission Date: 20120928
  Serious: Yes (Other)
  Sender: FDA-Public Use
  Company Number: JP-VERTEX PHARMACEUTICALS INC.-AE-2012-009272

PATIENT
  Age: 61 Year
  Sex: Male

DRUGS (8)
  1. INCIVEK [Suspect]
     Indication: HEPATITIS C
     Route: 048
     Dates: start: 20120509
  2. PEGINTERFERON ALFA-2B [Concomitant]
     Indication: HEPATITIS C
     Route: 058
     Dates: start: 20120509
  3. EPINASTINE HYDROCHLORIDE [Concomitant]
     Route: 048
     Dates: start: 20120501
  4. RIBAVIRIN [Concomitant]
     Indication: HEPATITIS C
     Route: 048
     Dates: start: 20120509, end: 20120604
  5. PEGINTERFERON ALFA-2B [Concomitant]
     Route: 058
     Dates: start: 20120621
  6. RIBAVIRIN [Concomitant]
     Route: 048
     Dates: start: 20120605
  7. FAMOTIDINE [Concomitant]
     Route: 048
     Dates: start: 20120501
  8. ACETAMINOPHEN [Concomitant]
     Route: 048
     Dates: start: 20120509

REACTIONS (1)
  - RETINOPATHY [None]
